FAERS Safety Report 20216150 (Version 3)
Quarter: 2022Q1

REPORT INFORMATION
  Report Type: Spontaneous
  Country: CZ (occurrence: CZ)
  Receive Date: 20211222
  Receipt Date: 20220223
  Transmission Date: 20220423
  Serious: Yes (Hospitalization, Disabling, Other)
  Sender: FDA-Public Use
  Company Number: CZ-ASTELLAS-2021US041887

PATIENT
  Age: 41 Year
  Sex: Male

DRUGS (10)
  1. TAMSULOSIN [Suspect]
     Active Substance: TAMSULOSIN
     Indication: Renal stone removal
     Dosage: 0.4 MILLIGRAM, ONCE A DAY (0-0-1)
     Route: 065
  2. TAMSULOSIN [Suspect]
     Active Substance: TAMSULOSIN
     Indication: Nephrolithiasis
  3. TAMSULOSIN [Suspect]
     Active Substance: TAMSULOSIN
     Indication: Ureterolithiasis
  4. TAMSULOSIN [Suspect]
     Active Substance: TAMSULOSIN
     Indication: Painful erection
  5. AMISULPRIDE [Suspect]
     Active Substance: AMISULPRIDE
     Indication: Schizophrenia
     Dosage: 200 MILLIGRAM, ONCE A DAY(200 MG, ONCE DAILY (0-0-1) )
     Route: 065
  6. DICLOFENAC [Concomitant]
     Active Substance: DICLOFENAC
     Indication: Pain
     Dosage: 50 MILLIGRAM, 3 TIMES A DAY(50 MG, THRICE DAILY (1-1-1))
     Route: 065
  7. DICLOFENAC [Concomitant]
     Active Substance: DICLOFENAC
     Dosage: 150 MILLIGRAM, ONCE A DAY(50 MG, TID (1-1-1)
     Route: 065
  8. EPINEPHRINE [Concomitant]
     Active Substance: EPINEPHRINE
     Indication: Product used for unknown indication
     Dosage: UNK
     Route: 065
  9. FELODIPINE [Concomitant]
     Active Substance: FELODIPINE
     Indication: Product used for unknown indication
     Dosage: 5 MILLIGRAM, ONCE A DAY(5 MG, ONCE DAILY (1-0-0) )
     Route: 065
  10. METAMIZOLE;PITOFENONE [Concomitant]
     Indication: Pain
     Dosage: 30 DROP, 3 TIMES A DAY(30-30-30 GTT, THRICE DAILY)
     Route: 065

REACTIONS (3)
  - Priapism [Recovered/Resolved with Sequelae]
  - Off label use [Recovered/Resolved with Sequelae]
  - Product use in unapproved indication [Unknown]
